FAERS Safety Report 24857233 (Version 2)
Quarter: 2025Q1

REPORT INFORMATION
  Report Type: Report from Study
  Country: US (occurrence: US)
  Receive Date: 20250117
  Receipt Date: 20250122
  Transmission Date: 20250409
  Serious: Yes (Death)
  Sender: BAYER HEALTHCARE PHARMACEUTICALS INC.
  Company Number: US-BAYER-2025A008339

PATIENT
  Age: 77 Year
  Sex: Male
  Weight: 77.098 kg

DRUGS (18)
  1. ADEMPAS [Suspect]
     Active Substance: RIOCIGUAT
     Indication: Pulmonary arterial hypertension
     Dates: start: 20181206
  2. ADEMPAS [Suspect]
     Active Substance: RIOCIGUAT
     Indication: Pulmonary arterial hypertension
     Dosage: 2.5 MG, TID
     Route: 048
  3. METFORMIN HYDROCHLORIDE [Concomitant]
     Active Substance: METFORMIN HYDROCHLORIDE
  4. TUMS [Concomitant]
     Active Substance: CALCIUM CARBONATE
  5. CVS COENZYME Q 10 [Concomitant]
  6. TRAZODONE HCL [Concomitant]
     Active Substance: TRAZODONE HYDROCHLORIDE
  7. ESBRIET [Concomitant]
     Active Substance: PIRFENIDONE
  8. LATANOPROST [Concomitant]
     Active Substance: LATANOPROST
  9. CALCIUM\VITAMIN D [Concomitant]
     Active Substance: CALCIUM\VITAMIN D
  10. FINASTERIDE [Concomitant]
     Active Substance: FINASTERIDE
  11. ELIQUIS [Concomitant]
     Active Substance: APIXABAN
  12. DIVALPROEX SODIUM [Concomitant]
     Active Substance: DIVALPROEX SODIUM
  13. NAC [Concomitant]
  14. VITAMINS [Concomitant]
     Active Substance: VITAMINS
  15. SIMVASTATIN [Concomitant]
     Active Substance: SIMVASTATIN
  16. OXYGEN [Concomitant]
     Active Substance: OXYGEN
  17. ASPIRIN [Concomitant]
     Active Substance: ASPIRIN
  18. BUPROPION HYDROCHLORIDE [Concomitant]
     Active Substance: BUPROPION HYDROCHLORIDE

REACTIONS (1)
  - Death [Fatal]

NARRATIVE: CASE EVENT DATE: 20250102
